FAERS Safety Report 19314202 (Version 1)
Quarter: 2021Q2

REPORT INFORMATION
  Report Type: Spontaneous
  Country: US (occurrence: US)
  Receive Date: 20210527
  Receipt Date: 20210527
  Transmission Date: 20210717
  Serious: Yes (Hospitalization)
  Sender: FDA-Public Use
  Company Number: None

PATIENT
  Age: 41 Year
  Sex: Male
  Weight: 91.17 kg

DRUGS (8)
  1. DEXAMETHASONE. [Concomitant]
     Active Substance: DEXAMETHASONE
     Dates: end: 20190610
  2. VINCRISTINE [Suspect]
     Active Substance: VINCRISTINE
     Dates: end: 20190611
  3. ONCASPAR [Suspect]
     Active Substance: PEGASPARGASE
     Dates: end: 20190607
  4. RITUXIMAB (MOAB C2B8 ANTI CD20, CHIMERIC) [Concomitant]
     Active Substance: RITUXIMAB
     Dates: end: 20190604
  5. LOVENOX [Concomitant]
     Active Substance: ENOXAPARIN SODIUM
  6. CYTARABINE. [Concomitant]
     Active Substance: CYTARABINE
     Dates: end: 20190521
  7. DAUNORUBICIN [Concomitant]
     Active Substance: DAUNORUBICIN
     Dates: end: 20190611
  8. METHOTREXATE. [Concomitant]
     Active Substance: METHOTREXATE
     Dates: end: 20190603

REACTIONS (7)
  - Subdural haematoma [None]
  - Cerebral mass effect [None]
  - Infection [None]
  - Intracranial pressure increased [None]
  - Brain compression [None]
  - Cerebral venous sinus thrombosis [None]
  - Brain oedema [None]

NARRATIVE: CASE EVENT DATE: 20190630
